FAERS Safety Report 9868497 (Version 2)
Quarter: 2014Q1

REPORT INFORMATION
  Report Type: Spontaneous
  Country: AR (occurrence: AR)
  Receive Date: 20140204
  Receipt Date: 20140204
  Transmission Date: 20141002
  Serious: Yes (Hospitalization)
  Sender: FDA-Public Use
  Company Number: AR-BIOMARINAP-AR-2012-102426

PATIENT
  Sex: Female
  Weight: 30 kg

DRUGS (4)
  1. NAGLAZYME [Suspect]
     Indication: MUCOPOLYSACCHARIDOSIS VI
     Dosage: 30MG,QW
     Route: 041
     Dates: start: 20080312
  2. ENALAPRIL [Concomitant]
     Indication: PULMONARY HYPERTENSION
     Dosage: .13MG/KG,QD
     Route: 048
  3. SERTRALINE [Concomitant]
     Indication: ANXIETY DISORDER
     Route: 048
  4. SERTRALINE [Concomitant]
     Indication: DEPRESSION

REACTIONS (3)
  - Carpal tunnel syndrome [Recovered/Resolved]
  - Tarsal tunnel syndrome [Recovered/Resolved]
  - Neuropathy peripheral [Recovered/Resolved]
